FAERS Safety Report 18050145 (Version 1)
Quarter: 2020Q3

REPORT INFORMATION
  Report Type: Spontaneous
  Country: ES (occurrence: ES)
  Receive Date: 20200721
  Receipt Date: 20200721
  Transmission Date: 20201103
  Serious: Yes (Life-Threatening)
  Sender: FDA-Public Use
  Company Number: NVSC2020ES204124

PATIENT
  Age: 44 Year
  Sex: Male

DRUGS (3)
  1. HYDROXYCHLOROQUINE SULFATE. [Suspect]
     Active Substance: HYDROXYCHLOROQUINE SULFATE
     Indication: COVID-19 TREATMENT
     Dosage: 400 MG, QD
     Route: 065
     Dates: start: 20200406, end: 20200414
  2. AZITHROMYCIN DIHYDRATE. [Suspect]
     Active Substance: AZITHROMYCIN DIHYDRATE
     Indication: COVID-19 TREATMENT
     Dosage: UNK (EVERY)
     Route: 065
     Dates: start: 20200406, end: 20200414
  3. LOPINAVIR [Suspect]
     Active Substance: LOPINAVIR
     Indication: COVID-19 TREATMENT
     Dosage: UNK (EVERY)
     Route: 065
     Dates: start: 20200406, end: 20200409

REACTIONS (1)
  - Atrial fibrillation [Unknown]

NARRATIVE: CASE EVENT DATE: 20200421
